FAERS Safety Report 7396495-4 (Version None)
Quarter: 2011Q1

REPORT INFORMATION
  Report Type: 
  Country: None (occurrence: None)
  Receive Date: 20110325
  Receipt Date: 20110318
  Transmission Date: 20110831
  Serious: Yes (Hospitalization)
  Sender: FDA-Public Use
  Company Number: 2009SP017305

PATIENT
  Age: 31 Year
  Sex: Female
  Weight: 84.8226 kg

DRUGS (3)
  1. TOPROL-XL [Concomitant]
  2. NUVARING [Suspect]
     Indication: CONTRACEPTION
     Dosage: 1 DF
     Dates: start: 20060401, end: 20061101
  3. RESTORIL [Concomitant]

REACTIONS (14)
  - MUSCLE STRAIN [None]
  - VENOUS THROMBOSIS [None]
  - CEREBRAL VENOUS THROMBOSIS [None]
  - HYPERTENSION [None]
  - ROAD TRAFFIC ACCIDENT [None]
  - MOVEMENT DISORDER [None]
  - SUBARACHNOID HAEMORRHAGE [None]
  - HEMIPARESIS [None]
  - COAGULATION FACTOR VIII LEVEL INCREASED [None]
  - BALANCE DISORDER [None]
  - LIPOPROTEIN (A) INCREASED [None]
  - HEADACHE [None]
  - INTRACRANIAL VENOUS SINUS THROMBOSIS [None]
  - THROMBOPHLEBITIS [None]
